FAERS Safety Report 17990928 (Version 1)
Quarter: 2020Q3

REPORT INFORMATION
  Report Type: Spontaneous
  Country: IR (occurrence: IR)
  Receive Date: 20200707
  Receipt Date: 20200707
  Transmission Date: 20201103
  Serious: Yes (Hospitalization, Other)
  Sender: FDA-Public Use
  Company Number: IR-MYLANLABS-2020M1062828

PATIENT
  Age: 58 Year
  Sex: Male

DRUGS (2)
  1. CLOZAPINE. [Suspect]
     Active Substance: CLOZAPINE
     Dosage: 150 MG, QD
     Route: 065
  2. CLOZAPINE. [Suspect]
     Active Substance: CLOZAPINE
     Indication: SCHIZOPHRENIA
     Dosage: 25 MG, QD
     Route: 065
     Dates: start: 201703

REACTIONS (8)
  - Pyrexia [Recovered/Resolved]
  - Lethargy [Unknown]
  - Hepatotoxicity [Recovered/Resolved]
  - Hepatocellular injury [Unknown]
  - Chills [Unknown]
  - Asthenia [Unknown]
  - Neutropenia [Recovered/Resolved]
  - Hyperbilirubinaemia [Unknown]
